FAERS Safety Report 24924982 (Version 1)
Quarter: 2025Q1

REPORT INFORMATION
  Report Type: Report from Study
  Country: US (occurrence: US)
  Receive Date: 20250204
  Receipt Date: 20250204
  Transmission Date: 20250408
  Serious: No
  Sender: EXELIXIS
  Company Number: US-EXELIXIS-CABO-24077422

PATIENT
  Age: 71 Year
  Sex: Male

DRUGS (10)
  1. CABOMETYX [Suspect]
     Active Substance: CABOZANTINIB S-MALATE
     Indication: Renal cancer
     Dosage: 40 MG, QD
     Route: 048
     Dates: start: 20240126
  2. ALBUTEROL [Concomitant]
     Active Substance: ALBUTEROL
  3. AMLODIPINE [Concomitant]
     Active Substance: AMLODIPINE BESYLATE
  4. CALCITRIOL [Concomitant]
     Active Substance: CALCITRIOL
  5. DUTASTERIDE [Concomitant]
     Active Substance: DUTASTERIDE
  6. ERGOCALCIFEROL [Concomitant]
     Active Substance: ERGOCALCIFEROL
  7. FLUTICASONE [Concomitant]
     Active Substance: FLUTICASONE
  8. LOVASTATIN [Concomitant]
     Active Substance: LOVASTATIN
  9. METOPROLOL SUCCINATE [Concomitant]
     Active Substance: METOPROLOL SUCCINATE
  10. NIFEDIPINE [Concomitant]
     Active Substance: NIFEDIPINE

REACTIONS (4)
  - Glossodynia [Unknown]
  - Taste disorder [Unknown]
  - Pain in extremity [Unknown]
  - Burning sensation [Unknown]

NARRATIVE: CASE EVENT DATE: 20240301
